FAERS Safety Report 4311255-6 (Version None)
Quarter: 2004Q1

REPORT INFORMATION
  Report Type: 
  Country: None (occurrence: None)
  Receive Date: 20040304
  Receipt Date: 20040212
  Transmission Date: 20041129
  Serious: Yes (Hospitalization)
  Sender: FDA-Public Use
  Company Number: WAES 0403DEU00014

PATIENT
  Age: 54 Year
  Sex: Male

DRUGS (3)
  1. CLOPIDOGREL BISULFATE [Concomitant]
     Route: 048
  2. ESOMEPRAZOLE MAGNESIUM [Concomitant]
     Route: 048
  3. VIOXX [Suspect]
     Indication: BACK PAIN
     Route: 048
     Dates: start: 20011227

REACTIONS (5)
  - BRONCHITIS [None]
  - CHEST DISCOMFORT [None]
  - DYSPNOEA [None]
  - FIBRINOUS BRONCHITIS [None]
  - PURULENCE [None]
